FAERS Safety Report 14901511 (Version 2)
Quarter: 2018Q4

REPORT INFORMATION
  Report Type: Report from Study
  Country: US (occurrence: US)
  Receive Date: 20180516
  Receipt Date: 20181108
  Transmission Date: 20190204
  Serious: Yes (Hospitalization)
  Sender: FDA-Public Use
  Company Number: US-TAKEDA-2018TUS009582

PATIENT
  Sex: Male

DRUGS (1)
  1. PONATINIB [Suspect]
     Active Substance: PONATINIB
     Indication: CHRONIC MYELOID LEUKAEMIA
     Dosage: 30 MG, QD
     Route: 048
     Dates: start: 201504

REACTIONS (9)
  - Blood pressure increased [Unknown]
  - Abdominal pain [Unknown]
  - Constipation [Unknown]
  - Red cell distribution width increased [Unknown]
  - Tuberculin test positive [Unknown]
  - Skin ulcer [Unknown]
  - Hospitalisation [Unknown]
  - Monocyte count increased [Unknown]
  - Cardiac disorder [Unknown]
